FAERS Safety Report 13866837 (Version 3)
Quarter: 2017Q3

REPORT INFORMATION
  Report Type: Spontaneous
  Country: IT (occurrence: IT)
  Receive Date: 20170814
  Receipt Date: 20170910
  Transmission Date: 20171127
  Serious: Yes (Death, Life-Threatening, Hospitalization, Other)
  Sender: FDA-Public Use
  Company Number: IT-TEVA-796961ACC

PATIENT
  Age: 3 Year
  Sex: Female

DRUGS (4)
  1. GEMCITABINE [Suspect]
     Active Substance: GEMCITABINE\GEMCITABINE HYDROCHLORIDE
     Indication: MEDULLOBLASTOMA
     Dosage: REDUCING THE DOSES TO 75% OF THE TOTAL) FOR A TOTAL OF FIVE COURSES, LASTED 12 WEEKS; UNKNOWN
     Route: 065
  2. CAPTOPRIL. [Concomitant]
     Active Substance: CAPTOPRIL
  3. OXALIPLATIN. [Suspect]
     Active Substance: OXALIPLATIN
     Indication: MEDULLOBLASTOMA
     Dosage: 3.5714 MG/M2 DAILY; FOR A TOTAL OF FIVE COURSES, FOR 12 WEEKS
     Route: 065
  4. FUROSEMIDE. [Concomitant]
     Active Substance: FUROSEMIDE

REACTIONS (12)
  - Dyspnoea [Unknown]
  - Thrombotic microangiopathy [Fatal]
  - Haemolytic uraemic syndrome [Recovering/Resolving]
  - Cardiovascular disorder [Fatal]
  - Pericardial effusion [Fatal]
  - Oedema peripheral [Fatal]
  - Acute respiratory distress syndrome [Unknown]
  - Renal impairment [Unknown]
  - Thrombocytopenia [Unknown]
  - Anaemia [Unknown]
  - Respiratory distress [Fatal]
  - Condition aggravated [Unknown]
